FAERS Safety Report 16774491 (Version 1)
Quarter: 2019Q3

REPORT INFORMATION
  Report Type: Spontaneous
  Country: ES (occurrence: ES)
  Receive Date: 20190905
  Receipt Date: 20190905
  Transmission Date: 20191005
  Serious: Yes (Hospitalization)
  Sender: FDA-Public Use
  Company Number: ES-TEVA-2019-ES-1100991

PATIENT
  Age: 70 Year
  Sex: Female

DRUGS (1)
  1. CAPECITABINA (1224A) [Suspect]
     Active Substance: CAPECITABINE
     Indication: BREAST CANCER
     Dosage: 1150 MILLIGRAM, 12 HOURS
     Route: 048
     Dates: start: 20180924

REACTIONS (3)
  - Hyperammonaemia [Recovered/Resolved]
  - Encephalopathy [Recovered/Resolved]
  - Status epilepticus [Recovered/Resolved]

NARRATIVE: CASE EVENT DATE: 20190508
